FAERS Safety Report 5154067-6 (Version None)
Quarter: 2006Q4

REPORT INFORMATION
  Report Type: 
  Country: None (occurrence: None)
  Receive Date: 20061116
  Receipt Date: 20061116
  Transmission Date: 20070319
  Serious: Yes (Other)
  Sender: FDA-Public Use
  Company Number: None

PATIENT
  Age: 75 Year
  Sex: Female

DRUGS (15)
  1. EVISTA [Suspect]
     Indication: OSTEOPOROSIS
     Dosage: 60 MG DAILY PO
     Route: 048
     Dates: end: 20060316
  2. ENOXAPARIN SODIUM [Concomitant]
  3. LEVOFLOXACIN [Concomitant]
  4. METHYLPREDNISOLONE [Concomitant]
  5. PREDNISONE TAB [Concomitant]
  6. METOCLOPRAMIDE [Concomitant]
  7. METRONIDAZOLE [Concomitant]
  8. AZETREONAM [Concomitant]
  9. THEOPHYLLINE [Concomitant]
  10. VASOPRESSIN DRIP [Concomitant]
  11. ALPRAZOLAM [Concomitant]
  12. ATORVASTATIN CALCIUM [Concomitant]
  13. CALCIUM CARBONATE [Concomitant]
  14. FLUTICASONE PROPIONATE [Concomitant]
  15. LEVOTHYROXINE SODIUM [Concomitant]

REACTIONS (3)
  - CATHETER SITE RELATED REACTION [None]
  - DEEP VEIN THROMBOSIS [None]
  - RESPIRATORY FAILURE [None]
